FAERS Safety Report 16768883 (Version 2)
Quarter: 2019Q4

REPORT INFORMATION
  Report Type: Spontaneous
  Country: US (occurrence: US)
  Receive Date: 20190903
  Receipt Date: 20191114
  Transmission Date: 20200122
  Serious: Yes (Other)
  Sender: FDA-Public Use
  Company Number: US-SA-2019SA240356

PATIENT
  Age: 66 Year
  Sex: Female

DRUGS (18)
  1. PLAVIX [Concomitant]
     Active Substance: CLOPIDOGREL BISULFATE
  2. TAXOTERE [Suspect]
     Active Substance: DOCETAXEL
     Indication: THYROID CANCER
     Dosage: UNK UNK, QOW
     Route: 042
     Dates: start: 20080801, end: 20080801
  3. ISOSORBIDE. [Concomitant]
     Active Substance: ISOSORBIDE
  4. TAXOTERE [Suspect]
     Active Substance: DOCETAXEL
     Indication: BREAST CANCER FEMALE
     Dosage: UNK UNK, QOW
     Route: 042
     Dates: start: 20080502, end: 20080502
  5. NEOSAR [Concomitant]
     Active Substance: CYCLOPHOSPHAMIDE
     Indication: BREAST CANCER FEMALE
  6. COZAAR [Concomitant]
     Active Substance: LOSARTAN POTASSIUM
  7. ZETIA [Concomitant]
     Active Substance: EZETIMIBE
  8. OMEPRAZOLE. [Concomitant]
     Active Substance: OMEPRAZOLE
  9. ATENOLOL. [Concomitant]
     Active Substance: ATENOLOL
  10. NEOSAR [Concomitant]
     Active Substance: CYCLOPHOSPHAMIDE
     Indication: THYROID CANCER
  11. NORVASC [Concomitant]
     Active Substance: AMLODIPINE BESYLATE
  12. VITAMIN B12 [Concomitant]
     Active Substance: CYANOCOBALAMIN
  13. UNITHROID [Concomitant]
     Active Substance: LEVOTHYROXINE SODIUM
  14. LIPITOR [Concomitant]
     Active Substance: ATORVASTATIN CALCIUM
  15. METFORMIN [Concomitant]
     Active Substance: METFORMIN HYDROCHLORIDE
  16. VITAMIN C [Concomitant]
     Active Substance: ASCORBIC ACID
  17. ACTOS [Concomitant]
     Active Substance: PIOGLITAZONE HYDROCHLORIDE
  18. AMLODIPINE [Concomitant]
     Active Substance: AMLODIPINE BESYLATE

REACTIONS (1)
  - Alopecia [Recovering/Resolving]

NARRATIVE: CASE EVENT DATE: 20080801
